FAERS Safety Report 9115151 (Version 1)
Quarter: 2013Q1

REPORT INFORMATION
  Report Type: Spontaneous
  Country: US (occurrence: US)
  Receive Date: 20130225
  Receipt Date: 20130225
  Transmission Date: 20140127
  Serious: Yes (Other)
  Sender: FDA-Public Use
  Company Number: US-ELI_LILLY_AND_COMPANY-US201302005258

PATIENT
  Sex: Female

DRUGS (1)
  1. FORTEO [Suspect]
     Indication: OSTEOPOROSIS
     Dosage: UNK, QD

REACTIONS (7)
  - Syncope [Unknown]
  - Head injury [Unknown]
  - Pain [Unknown]
  - Muscular weakness [Unknown]
  - Blood calcium increased [Unknown]
  - Vomiting [Unknown]
  - Gait disturbance [Unknown]
